FAERS Safety Report 8608799-5 (Version None)
Quarter: 2012Q3

REPORT INFORMATION
  Report Type: 
  Country: None (occurrence: None)
  Receive Date: 20120821
  Receipt Date: 20120807
  Transmission Date: 20120928
  Serious: No
  Sender: FDA-Public Use
  Company Number: US-ASTRAZENECA-2012SE55747

PATIENT
  Sex: Female

DRUGS (2)
  1. OMEPRAZOLE [Suspect]
     Route: 048
  2. NEXIUM [Suspect]
     Indication: ULCER
     Dosage: TWO TIMES A DAY
     Route: 048
     Dates: start: 20110908

REACTIONS (2)
  - ARTHROPOD BITE [None]
  - OFF LABEL USE [None]
